FAERS Safety Report 15408503 (Version 3)
Quarter: 2019Q2

REPORT INFORMATION
  Report Type: Spontaneous
  Country: US (occurrence: US)
  Receive Date: 20180920
  Receipt Date: 20190408
  Transmission Date: 20190711
  Serious: No
  Sender: FDA-Public Use
  Company Number: US-CELGENEUS-USA-20180906046

PATIENT
  Age: 28 Year
  Sex: Male

DRUGS (4)
  1. OTEZLA [Suspect]
     Active Substance: APREMILAST
     Route: 048
     Dates: start: 20190320
  2. OTEZLA [Suspect]
     Active Substance: APREMILAST
     Dosage: 30 MILLIGRAM
     Route: 048
     Dates: start: 201809, end: 20181011
  3. OTEZLA [Suspect]
     Active Substance: APREMILAST
     Indication: PSORIASIS
     Dosage: 10/20/30MG (28D)
     Route: 048
     Dates: start: 20180914
  4. OTEZLA [Suspect]
     Active Substance: APREMILAST
     Dosage: 30 MILLIGRAM
     Route: 048
     Dates: start: 2018

REACTIONS (5)
  - Diarrhoea [Not Recovered/Not Resolved]
  - Tension headache [Not Recovered/Not Resolved]
  - Headache [Not Recovered/Not Resolved]
  - Gastric disorder [Unknown]
  - Abdominal discomfort [Not Recovered/Not Resolved]

NARRATIVE: CASE EVENT DATE: 201809
